FAERS Safety Report 23202567 (Version 2)
Quarter: 2023Q4

REPORT INFORMATION
  Report Type: Report from Study
  Country: US (occurrence: US)
  Receive Date: 20231120
  Receipt Date: 20231125
  Transmission Date: 20240109
  Serious: Yes (Hospitalization)
  Sender: FDA-Public Use
  Company Number: US-JNJFOC-20231129712

PATIENT
  Sex: Female

DRUGS (3)
  1. SPRAVATO [Suspect]
     Active Substance: ESKETAMINE
     Indication: Depression
     Dosage: FIRST TREATMENT
     Dates: start: 20231103, end: 20231103
  2. SPRAVATO [Suspect]
     Active Substance: ESKETAMINE
     Dosage: SECOND TREATMENT
     Dates: start: 20231107, end: 20231107
  3. SPRAVATO [Suspect]
     Active Substance: ESKETAMINE
     Dates: start: 20231114, end: 20231116

REACTIONS (3)
  - Hospitalisation [Recovering/Resolving]
  - Drug ineffective [Unknown]
  - Ear pain [Unknown]

NARRATIVE: CASE EVENT DATE: 20231101
